FAERS Safety Report 20711852 (Version 2)
Quarter: 2022Q2

REPORT INFORMATION
  Report Type: Spontaneous
  Country: US (occurrence: US)
  Receive Date: 20220414
  Receipt Date: 20220602
  Transmission Date: 20220721
  Serious: No
  Sender: FDA-Public Use
  Company Number: US-PFIZER INC-2020213801

PATIENT
  Age: 32 Year
  Sex: Female
  Weight: 117.9 kg

DRUGS (2)
  1. XELJANZ XR [Suspect]
     Active Substance: TOFACITINIB CITRATE
     Indication: Colitis ulcerative
     Dosage: 22 MG
     Dates: start: 20200530
  2. XELJANZ XR [Suspect]
     Active Substance: TOFACITINIB CITRATE
     Dosage: 22 MG, DAILY
     Route: 048
     Dates: start: 20210721

REACTIONS (5)
  - Hypersensitivity [Unknown]
  - Rhinorrhoea [Unknown]
  - Headache [Unknown]
  - Sunburn [Unknown]
  - Wrong strength [Unknown]

NARRATIVE: CASE EVENT DATE: 20200530
